FAERS Safety Report 21907896 (Version 1)
Quarter: 2023Q1

REPORT INFORMATION
  Report Type: Report from Study
  Country: US (occurrence: US)
  Receive Date: 20230125
  Receipt Date: 20230125
  Transmission Date: 20230418
  Serious: Yes (Other)
  Sender: FDA-Public Use
  Company Number: US-TEVA-2023-US-2848062

PATIENT
  Sex: Female

DRUGS (1)
  1. CLARAVIS [Suspect]
     Active Substance: ISOTRETINOIN
     Indication: Product used for unknown indication
     Dosage: 20 MG

REACTIONS (5)
  - Insomnia [Unknown]
  - Abdominal pain [Unknown]
  - Dyspepsia [Unknown]
  - Headache [Unknown]
  - Oropharyngeal pain [Unknown]
